FAERS Safety Report 24742254 (Version 1)
Quarter: 2024Q4

REPORT INFORMATION
  Report Type: Spontaneous
  Country: US (occurrence: None)
  Receive Date: 20241216
  Receipt Date: 20241216
  Transmission Date: 20250115
  Serious: Yes (Other)
  Sender: Public
  Company Number: None

PATIENT
  Age: 63 Year
  Sex: Female

DRUGS (1)
  1. CAPECITABINE [Suspect]
     Active Substance: CAPECITABINE
     Indication: Breast cancer female
     Dosage: FREQUENCY : TWICE A DAY;?

REACTIONS (11)
  - Vomiting [None]
  - Erythema [None]
  - Hot flush [None]
  - Pruritus [None]
  - Erythema [None]
  - Pruritus [None]
  - Heart rate increased [None]
  - Anxiety [None]
  - Swelling face [None]
  - Swelling [None]
  - Nonspecific reaction [None]
